FAERS Safety Report 5182899-7 (Version None)
Quarter: 2006Q4

REPORT INFORMATION
  Report Type: 
  Country: None (occurrence: None)
  Receive Date: 20061220
  Receipt Date: 20061211
  Transmission Date: 20070319
  Serious: Yes (Other)
  Sender: FDA-Public Use
  Company Number: US-PURDUE-USA_2006_0025919

PATIENT
  Age: 16 Year
  Sex: Male

DRUGS (4)
  1. OXYCONTIN [Suspect]
     Indication: PAIN
     Dosage: UNK, TID
  2. METHADONE HCL [Suspect]
     Indication: PAIN
     Dosage: UNK, TID
  3. LIDODERM [Suspect]
     Indication: PAIN
     Dosage: UNK, UNK
  4. HYDROXYUREA [Suspect]
     Indication: PAIN
     Dosage: UNK, UNK

REACTIONS (3)
  - DRUG INEFFECTIVE [None]
  - HIP DEFORMITY [None]
  - SOMNOLENCE [None]
